FAERS Safety Report 7797766-X (Version None)
Quarter: 2011Q4

REPORT INFORMATION
  Report Type: 
  Country: None (occurrence: None)
  Receive Date: 20111005
  Receipt Date: 20111003
  Transmission Date: 20120403
  Serious: Yes (Other)
  Sender: FDA-Public Use
  Company Number: JP-BRACCO-005210

PATIENT
  Sex: Male
  Weight: 70 kg

DRUGS (6)
  1. IODINE [Interacting]
  2. MIBG-I 123 [Concomitant]
     Indication: RADIOISOTOPE SCAN
  3. IODINE [Suspect]
     Indication: RADIOTHERAPY
     Dosage: ADMINISTERED SIX DAYS PRIOR TO IOPAMIRON 370.
  4. ALL OTHER THERAPEUTIC PRODUCTS [Suspect]
     Indication: RADIOTHERAPY
     Route: 042
  5. IOMERON-150 [Concomitant]
     Dates: start: 20100216, end: 20110216
  6. IOPAMIDOL [Suspect]
     Indication: COMPUTERISED TOMOGRAM
     Route: 042
     Dates: start: 20100222, end: 20100222

REACTIONS (1)
  - HYPERTENSION [None]
